FAERS Safety Report 8821506 (Version 1)
Quarter: 2012Q4

REPORT INFORMATION
  Report Type: 
  Country: GB (occurrence: GB)
  Receive Date: 20121002
  Receipt Date: 20121002
  Transmission Date: 20130627
  Serious: Yes (Other)
  Sender: FDA-Public Use
  Company Number: GB-ASTELLAS-2012EU006710

PATIENT
  Age: 79 Year
  Sex: Female
  Weight: 69 kg

DRUGS (1)
  1. VESICARE [Suspect]
     Indication: HYPERTONIC BLADDER
     Dosage: 5 mg, UID/QD
     Route: 048
     Dates: start: 20120830, end: 20120910

REACTIONS (9)
  - Dysuria [Recovered/Resolved]
  - Nausea [Unknown]
  - Lethargy [Unknown]
  - Nasal dryness [Unknown]
  - Dry throat [Unknown]
  - Feeling abnormal [Unknown]
  - Headache [Unknown]
  - Dry mouth [Recovered/Resolved]
  - Constipation [Recovered/Resolved]
